FAERS Safety Report 17912986 (Version 1)
Quarter: 2020Q2

REPORT INFORMATION
  Report Type: Spontaneous
  Country: US (occurrence: US)
  Receive Date: 20200618
  Receipt Date: 20200618
  Transmission Date: 20200714
  Serious: Yes (Other)
  Sender: FDA-Public Use
  Company Number: US-PFIZER INC-2020236901

PATIENT
  Age: 34 Year
  Sex: Female

DRUGS (2)
  1. XELJANZ [Suspect]
     Active Substance: TOFACITINIB CITRATE
     Dosage: UNK
  2. PREDNISONE. [Concomitant]
     Active Substance: PREDNISONE
     Dosage: 20 MG, DAILY

REACTIONS (6)
  - Rectal haemorrhage [Unknown]
  - Intestinal ulcer [Unknown]
  - Colitis [Unknown]
  - Pain [Unknown]
  - Iron deficiency anaemia [Unknown]
  - Colitis ulcerative [Unknown]
